FAERS Safety Report 4372454-0 (Version None)
Quarter: 2004Q2

REPORT INFORMATION
  Report Type: 
  Country: None (occurrence: None)
  Receive Date: 20040603
  Receipt Date: 20040517
  Transmission Date: 20050107
  Serious: Yes (Life-Threatening, Hospitalization)
  Sender: FDA-Public Use
  Company Number: RTD20040002

PATIENT
  Age: 70 Year
  Sex: Female

DRUGS (7)
  1. RANITIDINE [Suspect]
     Dosage: 75 MG DAILY PO
     Route: 048
     Dates: start: 19980129, end: 19980621
  2. RANITIDINE [Suspect]
     Dosage: 150 MG DAILY PO
     Route: 048
     Dates: start: 19980106, end: 19980129
  3. PREDNISOLONE [Concomitant]
  4. FUROSEMIDE [Concomitant]
  5. A-CALCIDOL [Concomitant]
  6. AMLODIPINE [Concomitant]
  7. CALCIUM CARBONATE [Concomitant]

REACTIONS (14)
  - AGRANULOCYTOSIS [None]
  - BLOOD CREATININE INCREASED [None]
  - BLOOD LACTATE DEHYDROGENASE INCREASED [None]
  - BLOOD UREA INCREASED [None]
  - BODY TEMPERATURE DECREASED [None]
  - CHILLS [None]
  - CREATINE PHOSPHOKINASE DECREASED [None]
  - HAEMODIALYSIS [None]
  - LYMPHOCYTE COUNT INCREASED [None]
  - MONOCYTE COUNT INCREASED [None]
  - PLATELET COUNT DECREASED [None]
  - PYREXIA [None]
  - VOMITING [None]
  - WHITE BLOOD CELL COUNT DECREASED [None]
